FAERS Safety Report 17705346 (Version 2)
Quarter: 2020Q3

REPORT INFORMATION
  Report Type: Report from Study
  Country: BE (occurrence: BE)
  Receive Date: 20200424
  Receipt Date: 20200706
  Transmission Date: 20201102
  Serious: Yes (Other)
  Sender: FDA-Public Use
  Company Number: BE-BRISTOL-MYERS SQUIBB COMPANY-BMS-2020-002652

PATIENT

DRUGS (1)
  1. NIVOLUMAB [Suspect]
     Active Substance: NIVOLUMAB
     Indication: MALIGNANT MELANOMA
     Dosage: UNK
     Route: 065

REACTIONS (12)
  - Blepharitis [Recovered/Resolved]
  - Onychoclasis [Recovered/Resolved]
  - Fatigue [Recovered/Resolved]
  - Chest pain [Recovered/Resolved]
  - Gastrointestinal toxicity [Recovered/Resolved]
  - Hyperthyroidism [Recovered/Resolved]
  - Periorbital pain [Recovered/Resolved]
  - Balance disorder [Recovered/Resolved]
  - Vertigo [Recovered/Resolved]
  - Hypothyroidism [Not Recovered/Not Resolved]
  - Tooth abscess [Recovered/Resolved]
  - Abdominal pain [Recovered/Resolved]

NARRATIVE: CASE EVENT DATE: 20190703
